FAERS Safety Report 5808657-5 (Version None)
Quarter: 2008Q3

REPORT INFORMATION
  Report Type: 
  Country: None (occurrence: None)
  Receive Date: 20080714
  Receipt Date: 20080702
  Transmission Date: 20090109
  Serious: Yes (Other)
  Sender: FDA-Public Use
  Company Number: UG-BRISTOL-MYERS SQUIBB COMPANY-14258685

PATIENT
  Age: 34 Year
  Sex: Female

DRUGS (4)
  1. EFAVIRENZ [Suspect]
     Indication: HIV INFECTION
     Route: 048
     Dates: start: 20060914, end: 20070514
  2. VIRAMUNE [Suspect]
     Indication: HIV INFECTION
     Dosage: 28MAY07-22NOV07 400MG(179 DAYS)
     Route: 048
     Dates: start: 20070514, end: 20070528
  3. LAMIVUDINE [Suspect]
     Indication: HIV INFECTION
     Route: 048
     Dates: start: 20060914, end: 20071122
  4. TENOFOVIR DISOPROXIL FUMARATE [Suspect]
     Indication: HIV INFECTION
     Route: 048
     Dates: start: 20070914, end: 20071122

REACTIONS (2)
  - PREGNANCY [None]
  - STILLBIRTH [None]
